FAERS Safety Report 7622557-X (Version None)
Quarter: 2011Q3

REPORT INFORMATION
  Report Type: 
  Country: None (occurrence: None)
  Receive Date: 20110719
  Receipt Date: 20110719
  Transmission Date: 20111222
  Serious: No
  Sender: FDA-Public Use
  Company Number: None

PATIENT

DRUGS (2)
  1. ACETAMINOPHEN AND OXYCODONE HCL [Suspect]
  2. ACETAMINOPHEN AND OXYCODONE HCL [Suspect]
     Indication: POST-TRAUMATIC PAIN
     Dosage: 1  6 HOURS  PO
     Route: 048
     Dates: start: 20110310, end: 20110331

REACTIONS (1)
  - HEPATIC PAIN [None]
